FAERS Safety Report 8921995 (Version 1)
Quarter: 2012Q4

REPORT INFORMATION
  Report Type: Spontaneous
  Country: US (occurrence: None)
  Receive Date: 20121120
  Receipt Date: 20121120
  Transmission Date: 20130627
  Serious: Yes (Hospitalization)
  Sender: FDA-Public Use
  Company Number: None

PATIENT
  Age: 21 Year
  Sex: Male
  Weight: 66.1 kg

DRUGS (2)
  1. IBUPROFEN [Suspect]
     Indication: POSTOPERATIVE PAIN
     Dosage: prn po
     Route: 048
     Dates: start: 20121007, end: 20121013
  2. DESVENLAFAXINE [Suspect]
     Indication: DEPRESSION
     Route: 048
     Dates: start: 20121007, end: 20121013

REACTIONS (3)
  - Haematoma [None]
  - Drug interaction [None]
  - Peritoneal haemorrhage [None]
